FAERS Safety Report 24253839 (Version 1)
Quarter: 2024Q3

REPORT INFORMATION
  Report Type: Spontaneous
  Country: CA (occurrence: CA)
  Receive Date: 20240827
  Receipt Date: 20240827
  Transmission Date: 20241016
  Serious: Yes (Death)
  Sender: PFIZER
  Company Number: CA-PFIZER INC-PV202400110440

PATIENT
  Age: 40 Year
  Sex: Male

DRUGS (1)
  1. NIVESTYM [Suspect]
     Active Substance: FILGRASTIM-AAFI
     Indication: Chronic lymphocytic leukaemia
     Dosage: 480 MG 1 DAILY FOR 5 DAYS

REACTIONS (2)
  - Death [Fatal]
  - Off label use [Unknown]
